FAERS Safety Report 6881826-1 (Version None)
Quarter: 2010Q3

REPORT INFORMATION
  Report Type: 
  Country: None (occurrence: None)
  Receive Date: 20100729
  Receipt Date: 20100720
  Transmission Date: 20110219
  Serious: Yes (Other)
  Sender: FDA-Public Use
  Company Number: JP-PFIZER INC-2010081123

PATIENT
  Age: 82 Year
  Sex: Female

DRUGS (2)
  1. VFEND [Suspect]
     Indication: SYSTEMIC CANDIDA
     Dosage: 600 MG/DAY
     Route: 048
     Dates: start: 20100628, end: 20100628
  2. VFEND [Suspect]
     Dosage: 150 MG, SINGLE
     Route: 048
     Dates: start: 20100629, end: 20100629

REACTIONS (2)
  - OSCILLOPSIA [None]
  - VISION BLURRED [None]
